FAERS Safety Report 10004735 (Version 1)
Quarter: 2014Q1

REPORT INFORMATION
  Report Type: Spontaneous
  Country: US (occurrence: US)
  Receive Date: 20140312
  Receipt Date: 20140312
  Transmission Date: 20141002
  Serious: Yes (Hospitalization)
  Sender: FDA-Public Use
  Company Number: US-GLAXOSMITHKLINE-A1064396A

PATIENT
  Age: 61 Year
  Sex: Female

DRUGS (1)
  1. ADVAIR [Suspect]
     Indication: CHRONIC OBSTRUCTIVE PULMONARY DISEASE
     Route: 065
     Dates: start: 20130315

REACTIONS (13)
  - Oxygen supplementation [Unknown]
  - Bipolar disorder [Unknown]
  - Myocardial infarction [Unknown]
  - Coronary arterial stent insertion [Unknown]
  - Carotid artery stent insertion [Unknown]
  - Implantable defibrillator insertion [Unknown]
  - Pulmonary thrombosis [Unknown]
  - Disability [Unknown]
  - Back disorder [Unknown]
  - Lung disorder [Unknown]
  - Panic attack [Unknown]
  - Coronary artery disease [Unknown]
  - Cardiac assistance device user [Unknown]
